FAERS Safety Report 8019406-7 (Version None)
Quarter: 2012Q1

REPORT INFORMATION
  Report Type: 
  Country: None (occurrence: None)
  Receive Date: 20120103
  Receipt Date: 20111222
  Transmission Date: 20120608
  Serious: Yes (Other)
  Sender: FDA-Public Use
  Company Number: PHHY2011ES113687

PATIENT

DRUGS (2)
  1. CERTICAN [Suspect]
     Indication: LIVER TRANSPLANT
     Dosage: UNK UKN, UNK
  2. SORAFENIB [Concomitant]
     Indication: LIVER TRANSPLANT
     Dosage: UNK UKN, UNK

REACTIONS (1)
  - HEPATOTOXICITY [None]
